FAERS Safety Report 12407834 (Version 1)
Quarter: 2016Q2

REPORT INFORMATION
  Report Type: Spontaneous
  Country: US (occurrence: US)
  Receive Date: 20160526
  Receipt Date: 20160526
  Transmission Date: 20160815
  Serious: No
  Sender: FDA-Public Use
  Company Number: ALCN2016US003631

PATIENT
  Sex: Female

DRUGS (1)
  1. DUREZOL [Suspect]
     Active Substance: DIFLUPREDNATE
     Indication: RETINAL OEDEMA
     Dosage: UNK
     Route: 047

REACTIONS (3)
  - Eye irritation [Not Recovered/Not Resolved]
  - Eye swelling [Not Recovered/Not Resolved]
  - Reaction to preservatives [Not Recovered/Not Resolved]
